FAERS Safety Report 6475918-9 (Version None)
Quarter: 2009Q4

REPORT INFORMATION
  Report Type: 
  Country: None (occurrence: None)
  Receive Date: 20091204
  Receipt Date: 20091125
  Transmission Date: 20100525
  Serious: Yes (Hospitalization)
  Sender: FDA-Public Use
  Company Number: PHHY2009JP52151

PATIENT
  Age: 77 Year
  Sex: Female

DRUGS (2)
  1. DIOVAN [Suspect]
     Indication: HYPERTENSION
     Dosage: 160 MG, UNK
     Route: 048
     Dates: start: 20091001
  2. DIOVAN HCT [Concomitant]
     Route: 048

REACTIONS (3)
  - ANAPHYLACTOID REACTION [None]
  - ASTHENIA [None]
  - HYPOAESTHESIA [None]
